FAERS Safety Report 19933980 (Version 1)
Quarter: 2021Q4

REPORT INFORMATION
  Report Type: Report from Study
  Country: ES (occurrence: ES)
  Receive Date: 20211008
  Receipt Date: 20211008
  Transmission Date: 20220303
  Serious: Yes (Other)
  Sender: FDA-Public Use
  Company Number: ES-JNJFOC-20211006607

PATIENT

DRUGS (6)
  1. REMICADE [Suspect]
     Active Substance: INFLIXIMAB
     Indication: Uveitis
     Route: 042
  2. REMICADE [Suspect]
     Active Substance: INFLIXIMAB
     Indication: Behcet^s syndrome
  3. REMICADE [Suspect]
     Active Substance: INFLIXIMAB
     Indication: Sarcoidosis
  4. REMICADE [Suspect]
     Active Substance: INFLIXIMAB
     Indication: Systemic lupus erythematosus
  5. REMICADE [Suspect]
     Active Substance: INFLIXIMAB
     Indication: Vasculitis
  6. REMICADE [Suspect]
     Active Substance: INFLIXIMAB
     Indication: Sjogren^s syndrome

REACTIONS (3)
  - Suspected COVID-19 [Unknown]
  - Off label use [Unknown]
  - Product use in unapproved indication [Unknown]
